FAERS Safety Report 4692755-6 (Version None)
Quarter: 2005Q2

REPORT INFORMATION
  Report Type: 
  Country: None (occurrence: None)
  Receive Date: 20050617
  Receipt Date: 20050609
  Transmission Date: 20051028
  Serious: Yes (Other)
  Sender: FDA-Public Use
  Company Number: ES-GLAXOSMITHKLINE-B0384577A

PATIENT
  Age: 25 Year
  Sex: Female
  Weight: 87 kg

DRUGS (2)
  1. FLUTICASONE/SALMETEROL [Suspect]
     Route: 048
  2. SINGULAIR [Suspect]
     Indication: ASTHMA
     Route: 055
     Dates: start: 20050201, end: 20050418

REACTIONS (3)
  - CONVULSION [None]
  - DEPRESSED LEVEL OF CONSCIOUSNESS [None]
  - MUSCLE CONTRACTIONS INVOLUNTARY [None]
